FAERS Safety Report 20050425 (Version 7)
Quarter: 2022Q2

REPORT INFORMATION
  Report Type: Report from Study
  Country: US (occurrence: US)
  Receive Date: 20211109
  Receipt Date: 20220428
  Transmission Date: 20220720
  Serious: Yes (Other)
  Sender: FDA-Public Use
  Company Number: US-ABBVIE-21P-163-4153284-00

PATIENT
  Age: 72 Year
  Sex: Male
  Weight: 67.9 kg

DRUGS (20)
  1. IBRUTINIB [Suspect]
     Active Substance: IBRUTINIB
     Indication: Waldenstrom^s macroglobulinaemia
     Route: 048
     Dates: start: 20210824, end: 20211015
  2. IBRUTINIB [Suspect]
     Active Substance: IBRUTINIB
     Route: 048
     Dates: start: 20211016, end: 20211016
  3. IBRUTINIB [Suspect]
     Active Substance: IBRUTINIB
     Route: 048
     Dates: start: 20211017, end: 20211017
  4. IBRUTINIB [Suspect]
     Active Substance: IBRUTINIB
     Route: 048
     Dates: start: 20211018, end: 20211019
  5. IBRUTINIB [Suspect]
     Active Substance: IBRUTINIB
     Route: 048
     Dates: start: 20211020
  6. MAVORIXAFOR/X4P-001 [Concomitant]
     Indication: Waldenstrom^s macroglobulinaemia
     Route: 048
     Dates: start: 20210824, end: 20210920
  7. MAVORIXAFOR/X4P-001 [Concomitant]
     Route: 048
     Dates: start: 20210921, end: 20211004
  8. MAVORIXAFOR/X4P-001 [Concomitant]
     Route: 048
     Dates: start: 20211005, end: 20211008
  9. MAVORIXAFOR/X4P-001 [Concomitant]
     Route: 048
     Dates: start: 20211009, end: 20211010
  10. MAVORIXAFOR/X4P-001 [Concomitant]
     Route: 048
     Dates: start: 20211011, end: 20211011
  11. MAVORIXAFOR/X4P-001 [Concomitant]
     Route: 048
     Dates: start: 20211012, end: 20211015
  12. MAVORIXAFOR/X4P-001 [Concomitant]
     Route: 048
     Dates: start: 20211016, end: 20211016
  13. MAVORIXAFOR/X4P-001 [Concomitant]
     Route: 048
     Dates: start: 20211017, end: 20211017
  14. MAVORIXAFOR/X4P-001 [Concomitant]
     Route: 048
     Dates: start: 20211018, end: 20211019
  15. MAVORIXAFOR/X4P-001 [Concomitant]
     Route: 048
     Dates: start: 20211020, end: 20211021
  16. MAVORIXAFOR/X4P-001 [Concomitant]
     Route: 048
     Dates: start: 20211022
  17. ACETAMINOPHEN [Concomitant]
     Active Substance: ACETAMINOPHEN
     Indication: Product used for unknown indication
  18. OXYCODONE [Concomitant]
     Active Substance: OXYCODONE
     Indication: Product used for unknown indication
  19. ONDANSETRON [Concomitant]
     Active Substance: ONDANSETRON
     Indication: Product used for unknown indication
  20. MIRALAX [Concomitant]
     Active Substance: POLYETHYLENE GLYCOL 3350
     Indication: Product used for unknown indication

REACTIONS (3)
  - Otitis media [Recovered/Resolved]
  - Otitis media [Recovered/Resolved]
  - Otitis media [Recovered/Resolved]

NARRATIVE: CASE EVENT DATE: 20210928
